FAERS Safety Report 5161302-7 (Version None)
Quarter: 2006Q4

REPORT INFORMATION
  Report Type: 
  Country: None (occurrence: None)
  Receive Date: 20061130
  Receipt Date: 20061020
  Transmission Date: 20070319
  Serious: Yes (Disabling, Other)
  Sender: FDA-Public Use
  Company Number: US-BRISTOL-MYERS SQUIBB COMPANY-13549449

PATIENT
  Sex: Male
  Weight: 98 kg

DRUGS (3)
  1. ERBITUX [Suspect]
     Indication: COLON CANCER
     Route: 041
     Dates: start: 20060914, end: 20060914
  2. AVASTIN [Concomitant]
     Indication: COLON CANCER
     Dates: start: 20060401, end: 20060801
  3. ALOXI [Concomitant]
     Indication: PREMEDICATION
     Dates: start: 20060914, end: 20060914

REACTIONS (7)
  - CONVULSION [None]
  - DYSPNOEA [None]
  - FEELING HOT [None]
  - LOSS OF CONSCIOUSNESS [None]
  - PRURITUS [None]
  - RASH MACULAR [None]
  - URTICARIA [None]
